FAERS Safety Report 10097961 (Version 3)
Quarter: 2014Q2

REPORT INFORMATION
  Report Type: Spontaneous
  Country: US (occurrence: US)
  Receive Date: 20140423
  Receipt Date: 20140522
  Transmission Date: 20141212
  Serious: Yes (Hospitalization, Other)
  Sender: FDA-Public Use
  Company Number: US-BEH-2011030257

PATIENT
  Age: 61 Year
  Sex: Female

DRUGS (4)
  1. ZEMAIRA [Suspect]
     Indication: ALPHA-1 ANTI-TRYPSIN DEFICIENCY
     Route: 042
     Dates: start: 20140401, end: 20140402
  2. ZEMAIRA [Suspect]
     Route: 042
     Dates: start: 20140410, end: 20140411
  3. ZEMAIRA [Suspect]
     Route: 042
     Dates: start: 20140417, end: 20140417
  4. ZEMAIRA [Suspect]
     Route: 042
     Dates: start: 20140424, end: 20140424

REACTIONS (13)
  - Pneumonia [Unknown]
  - Dyspnoea [Unknown]
  - Pneumonia [Recovering/Resolving]
  - Dyspnoea [Unknown]
  - Pneumonia [Unknown]
  - Diarrhoea [Unknown]
  - Fatigue [Unknown]
  - Muscular weakness [Unknown]
  - Myalgia [Unknown]
  - Insomnia [Unknown]
  - Weight decreased [Unknown]
  - Pneumonia [Recovered/Resolved]
  - Peripheral coldness [Not Recovered/Not Resolved]
